FAERS Safety Report 13086763 (Version 1)
Quarter: 2017Q1

REPORT INFORMATION
  Report Type: Report from Study
  Country: ES (occurrence: ES)
  Receive Date: 20170104
  Receipt Date: 20170104
  Transmission Date: 20170428
  Serious: Yes (Death, Hospitalization, Other)
  Sender: FDA-Public Use
  Company Number: ES-BAXTER-2016BAX064895

PATIENT
  Age: 85 Year
  Sex: Female

DRUGS (5)
  1. GENOXAL GRAGEAS [Suspect]
     Active Substance: CYCLOPHOSPHAMIDE
     Indication: NON-HODGKIN^S LYMPHOMA
     Dosage: 1-0-0
     Route: 048
     Dates: start: 20150504, end: 20150524
  2. FUROSEMIDA [Suspect]
     Active Substance: FUROSEMIDE
     Indication: HYPERTENSION
     Dosage: 0-1/2-0
     Route: 048
     Dates: start: 20150504
  3. VIREAD [Suspect]
     Active Substance: TENOFOVIR DISOPROXIL FUMARATE
     Indication: ANTIVIRAL PROPHYLAXIS
     Dosage: 1-0-0
     Route: 048
     Dates: start: 20150504, end: 20150522
  4. BARACLUDE [Suspect]
     Active Substance: ENTECAVIR
     Indication: ANTIVIRAL PROPHYLAXIS
     Dosage: 1-0-0
     Route: 048
     Dates: start: 20150523, end: 20150524
  5. OMEPRAZOL [Suspect]
     Active Substance: OMEPRAZOLE
     Indication: PROPHYLAXIS AGAINST GASTROINTESTINAL ULCER
     Dosage: 1 CP
     Route: 048
     Dates: start: 20150504

REACTIONS (3)
  - Cardiac failure congestive [Fatal]
  - Atrial fibrillation [Unknown]
  - Sinus node dysfunction [Fatal]

NARRATIVE: CASE EVENT DATE: 20150524
